FAERS Safety Report 16347610 (Version 1)
Quarter: 2019Q3

REPORT INFORMATION
  Report Type: Spontaneous
  Country: US (occurrence: US)
  Receive Date: 20190522
  Receipt Date: 20190522
  Transmission Date: 20191004
  Serious: Yes (Hospitalization)
  Sender: FDA-Public Use
  Company Number: None

PATIENT
  Age: 66 Year
  Sex: Female

DRUGS (7)
  1. POT CL MICRO [Concomitant]
  2. HUMULIN NOS [Concomitant]
     Active Substance: INSULIN HUMAN
  3. HYDROXYZ HCL [Concomitant]
     Active Substance: HYDROXYZINE HYDROCHLORIDE
  4. LISINOPRIL. [Concomitant]
     Active Substance: LISINOPRIL
  5. ONETOUCH [Concomitant]
  6. XELODA [Suspect]
     Active Substance: CAPECITABINE
     Indication: COLON CANCER
  7. INSULIN SYRG [Concomitant]

REACTIONS (3)
  - Gastrointestinal disorder [None]
  - Diarrhoea [None]
  - Blood potassium abnormal [None]

NARRATIVE: CASE EVENT DATE: 20181019
